FAERS Safety Report 14797216 (Version 1)
Quarter: 2018Q2

REPORT INFORMATION
  Report Type: Spontaneous
  Country: FR (occurrence: FR)
  Receive Date: 20180423
  Receipt Date: 20180423
  Transmission Date: 20180711
  Serious: Yes (Other)
  Sender: FDA-Public Use
  Company Number: FR-MERCK KGAA-2046323

PATIENT
  Age: 68 Year
  Sex: Female

DRUGS (1)
  1. NOVOTHYROX [Suspect]
     Active Substance: LEVOTHYROXINE SODIUM
     Indication: THYROID DISORDER
     Dates: end: 201711

REACTIONS (21)
  - Headache [None]
  - Mood swings [None]
  - Thyroglobulin increased [None]
  - Muscle spasms [Recovered/Resolved]
  - Hyperacusis [None]
  - Fatigue [None]
  - Social avoidant behaviour [None]
  - Decreased interest [None]
  - Fall [None]
  - Haemorrhage [None]
  - Dizziness [None]
  - Rib fracture [None]
  - Blood thyroid stimulating hormone decreased [None]
  - Syncope [None]
  - Insomnia [None]
  - Malaise [None]
  - Migraine [None]
  - Personal relationship issue [None]
  - Depressed mood [None]
  - Cerebellar haematoma [None]
  - Loss of personal independence in daily activities [None]

NARRATIVE: CASE EVENT DATE: 2017
